FAERS Safety Report 5823190-2 (Version None)
Quarter: 2008Q3

REPORT INFORMATION
  Report Type: 
  Country: None (occurrence: None)
  Receive Date: 20080725
  Receipt Date: 20080721
  Transmission Date: 20090109
  Serious: Yes (Death, Hospitalization)
  Sender: FDA-Public Use
  Company Number: PHBS2008IT05182

PATIENT
  Age: 6 Year
  Sex: Male

DRUGS (4)
  1. IMATINIB MESYLATE [Suspect]
     Indication: ACUTE LEUKAEMIA
     Dosage: 300 MG/M2, DAY
     Route: 048
  2. CYCLOPHOSPHAMIDE [Suspect]
     Indication: ACUTE LEUKAEMIA
     Route: 048
  3. CYTARABINE [Suspect]
     Indication: ACUTE LEUKAEMIA
     Route: 048
  4. CHEMOTHERAPEUTICS NOS [Suspect]
     Indication: ACUTE LEUKAEMIA

REACTIONS (6)
  - APHASIA [None]
  - ASTHENIA [None]
  - NERVOUS SYSTEM DISORDER [None]
  - SOMNOLENCE [None]
  - SPEECH DISORDER [None]
  - STEM CELL TRANSPLANT [None]
